FAERS Safety Report 7135892-9 (Version None)
Quarter: 2010Q4

REPORT INFORMATION
  Report Type: 
  Country: None (occurrence: None)
  Receive Date: 20101204
  Receipt Date: 20081001
  Transmission Date: 20110411
  Serious: Yes (Other)
  Sender: FDA-Public Use
  Company Number: US-BAYER-201042093NA

PATIENT

DRUGS (1)
  1. TRASYLOL [Suspect]
     Indication: SURGERY
     Dosage: UNK
     Route: 042
     Dates: start: 19950801, end: 19950801

REACTIONS (6)
  - ANXIETY [None]
  - EMOTIONAL DISORDER [None]
  - EMOTIONAL DISTRESS [None]
  - INJURY [None]
  - PAIN [None]
  - RENAL FAILURE [None]
